FAERS Safety Report 4386258-6 (Version None)
Quarter: 2004Q2

REPORT INFORMATION
  Report Type: 
  Country: None (occurrence: None)
  Receive Date: 20040628
  Receipt Date: 20040628
  Transmission Date: 20050107
  Serious: Yes (Hospitalization)
  Sender: FDA-Public Use
  Company Number: None

PATIENT
  Age: 77 Year
  Sex: Male
  Weight: 61 kg

DRUGS (3)
  1. TAXOL [Suspect]
     Indication: NON-SMALL CELL LUNG CANCER
     Dosage: 342 MG IV (DAY 1 Q 3 WKS)
     Route: 042
     Dates: start: 20040615
  2. GEMCITABINE [Suspect]
     Dosage: 1710 MG IV (DAY Q 3 WKS)
     Route: 042
     Dates: start: 20040615
  3. GEMCITABINE [Suspect]
     Dosage: 1710 MG IV (DAY Q 3 WKS)
     Route: 042
     Dates: start: 20040622

REACTIONS (3)
  - BLOOD PRESSURE DIASTOLIC INCREASED [None]
  - PNEUMONIA [None]
  - RESPIRATORY RATE INCREASED [None]
